FAERS Safety Report 23267867 (Version 1)
Quarter: 2023Q4

REPORT INFORMATION
  Report Type: Spontaneous
  Country: US (occurrence: US)
  Receive Date: 20231206
  Receipt Date: 20231206
  Transmission Date: 20240109
  Serious: No
  Sender: FDA-Public Use
  Company Number: US-MYLANLABS-2023M1128409

PATIENT
  Sex: Female
  Weight: 58 kg

DRUGS (1)
  1. ESTRADIOL TRANSDERMAL SYSTEM [Suspect]
     Active Substance: ESTRADIOL
     Indication: Hormone replacement therapy
     Dosage: 0.075 MILLIGRAM, QD
     Route: 062
     Dates: start: 20231109, end: 20231112

REACTIONS (1)
  - Strabismus [Unknown]
